FAERS Safety Report 4694438-5 (Version None)
Quarter: 2005Q2

REPORT INFORMATION
  Report Type: 
  Country: None (occurrence: None)
  Receive Date: 20050620
  Receipt Date: 20050606
  Transmission Date: 20051028
  Serious: Yes (Other)
  Sender: FDA-Public Use
  Company Number: FR-JNJFOC-20050603836

PATIENT
  Age: 51 Year
  Sex: Female

DRUGS (3)
  1. TOPALGIC [Suspect]
     Route: 065
  2. PROFENID [Suspect]
     Route: 065
  3. ACETAMINOPHEN [Suspect]
     Route: 065

REACTIONS (1)
  - AGRANULOCYTOSIS [None]
